FAERS Safety Report 16813946 (Version 7)
Quarter: 2021Q2

REPORT INFORMATION
  Report Type: Spontaneous
  Country: US (occurrence: US)
  Receive Date: 20190917
  Receipt Date: 20210624
  Transmission Date: 20210716
  Serious: Yes (Other)
  Sender: FDA-Public Use
  Company Number: US-GILEAD-2019-0428026

PATIENT
  Age: 50 Year
  Sex: Male
  Weight: 96.15 kg

DRUGS (71)
  1. KALETRA [Concomitant]
     Active Substance: LOPINAVIR\RITONAVIR
  2. SULFAMETHOXAZOLE AND TRIMETHOPRIM [Concomitant]
     Active Substance: SULFAMETHOXAZOLE\TRIMETHOPRIM
  3. PREDNISONE. [Concomitant]
     Active Substance: PREDNISONE
  4. CIALIS [Concomitant]
     Active Substance: TADALAFIL
  5. ROSUVASTATIN CALCIUM. [Concomitant]
     Active Substance: ROSUVASTATIN CALCIUM
  6. FENOFIBRATE. [Concomitant]
     Active Substance: FENOFIBRATE
  7. DOXYCYCLINE HYCLATE. [Concomitant]
     Active Substance: DOXYCYCLINE HYCLATE
  8. ZETIA [Concomitant]
     Active Substance: EZETIMIBE
  9. NEOMYCIN. [Concomitant]
     Active Substance: NEOMYCIN
  10. ADVAIR HFA [Concomitant]
     Active Substance: FLUTICASONE PROPIONATE\SALMETEROL XINAFOATE
  11. AMITRIPTYLINE [Concomitant]
     Active Substance: AMITRIPTYLINE
  12. AZITHROMYCIN ANHYDROUS. [Concomitant]
     Active Substance: AZITHROMYCIN ANHYDROUS
  13. LIDOCAINE HCL [Concomitant]
     Active Substance: LIDOCAINE HYDROCHLORIDE
  14. HYDROXYZINE [Concomitant]
     Active Substance: HYDROXYZINE HYDROCHLORIDE
  15. ALLOPURINOL. [Concomitant]
     Active Substance: ALLOPURINOL
  16. MUPIROCIN. [Concomitant]
     Active Substance: MUPIROCIN
  17. OXYCODONE [Concomitant]
     Active Substance: OXYCODONE
  18. ONDANSETRON [Concomitant]
     Active Substance: ONDANSETRON
  19. TOUJEO [Concomitant]
     Active Substance: INSULIN GLARGINE
  20. BUPROPION HYDROCHLORIDE XL [Concomitant]
     Active Substance: BUPROPION HYDROCHLORIDE
  21. ALDARA [Concomitant]
     Active Substance: IMIQUIMOD
  22. CICLOPIROX. [Concomitant]
     Active Substance: CICLOPIROX
  23. GLIPIZIDE. [Concomitant]
     Active Substance: GLIPIZIDE
  24. LEVOFLOXACIN. [Concomitant]
     Active Substance: LEVOFLOXACIN
  25. VASCEPA [Concomitant]
     Active Substance: ICOSAPENT ETHYL
  26. AMMONIUM LACTATE. [Concomitant]
     Active Substance: AMMONIUM LACTATE
  27. INDOMETHACIN [INDOMETACIN] [Concomitant]
     Active Substance: INDOMETHACIN
  28. CETIRIZINE [Concomitant]
     Active Substance: CETIRIZINE HYDROCHLORIDE
  29. PROCHLORPERAZINE. [Concomitant]
     Active Substance: PROCHLORPERAZINE
  30. TRADJENTA [Concomitant]
     Active Substance: LINAGLIPTIN
  31. SERTRALINE [Concomitant]
     Active Substance: SERTRALINE HYDROCHLORIDE
  32. SEROQUEL [Concomitant]
     Active Substance: QUETIAPINE FUMARATE
  33. ZOLPIDEM TARTRATE. [Concomitant]
     Active Substance: ZOLPIDEM TARTRATE
  34. TRESIBA [Concomitant]
     Active Substance: INSULIN DEGLUDEC
  35. TRAVATAN [Concomitant]
     Active Substance: TRAVOPROST
  36. TRAZODONE [Concomitant]
     Active Substance: TRAZODONE HYDROCHLORIDE
  37. SILDENAFIL. [Concomitant]
     Active Substance: SILDENAFIL
  38. PERCOCET [OXYCODONE HYDROCHLORIDE;OXYCODONE TEREPHTHALATE;PARACETAMOL] [Concomitant]
     Active Substance: ACETAMINOPHEN\OXYCODONE HYDROCHLORIDE\OXYCODONE TEREPHTHALATE
  39. VITAMIN D2 [Concomitant]
     Active Substance: ERGOCALCIFEROL
  40. ISENTRESS [Concomitant]
     Active Substance: RALTEGRAVIR POTASSIUM
  41. ULORIC [Concomitant]
     Active Substance: FEBUXOSTAT
  42. AMOXICILLIN TRIHYDRATE;CLAVULANATE POTASSIUM [Concomitant]
     Active Substance: AMOXICILLIN\CLAVULANATE POTASSIUM
  43. PURELAX [Concomitant]
     Active Substance: POLYETHYLENE GLYCOL 3350
  44. IPRATROPIUM [Concomitant]
     Active Substance: IPRATROPIUM
  45. TRUVADA [Suspect]
     Active Substance: EMTRICITABINE\TENOFOVIR DISOPROXIL FUMARATE
     Indication: HIV INFECTION
     Dosage: UNK
     Route: 048
     Dates: start: 20100907, end: 20160715
  46. METFORMIN HYDROCHLORIDE. [Concomitant]
     Active Substance: METFORMIN HYDROCHLORIDE
  47. TAMSULOSIN [Concomitant]
     Active Substance: TAMSULOSIN
  48. CONDYLOX [Concomitant]
     Active Substance: PODOFILOX
  49. TRUVADA [Suspect]
     Active Substance: EMTRICITABINE\TENOFOVIR DISOPROXIL FUMARATE
     Dosage: UNK
     Route: 065
     Dates: start: 20120308, end: 20160715
  50. DESCOVY [Concomitant]
     Active Substance: EMTRICITABINE\TENOFOVIR ALAFENAMIDE FUMARATE
  51. LYRICA [Concomitant]
     Active Substance: PREGABALIN
  52. SILVADENE [Concomitant]
     Active Substance: SILVER SULFADIAZINE
  53. OXYCODONE AND ACETAMINOPHEN [Concomitant]
     Active Substance: ACETAMINOPHEN\OXYCODONE HYDROCHLORIDE
  54. FEBUXOSTAT. [Concomitant]
     Active Substance: FEBUXOSTAT
  55. PRAVASTATIN SODIUM. [Concomitant]
     Active Substance: PRAVASTATIN SODIUM
  56. MOXIFLOXACIN. [Concomitant]
     Active Substance: MOXIFLOXACIN
  57. X?VIATE [Concomitant]
     Active Substance: UREA
  58. BISACODYL. [Concomitant]
     Active Substance: BISACODYL
  59. COLLAGENASE SANTYL [Concomitant]
     Active Substance: COLLAGENASE CLOSTRIDIUM HISTOLYTICUM
  60. GABITRIL [Concomitant]
     Active Substance: TIAGABINE HYDROCHLORIDE
  61. BYDUREON [Concomitant]
     Active Substance: EXENATIDE
  62. NYSTATIN. [Concomitant]
     Active Substance: NYSTATIN
  63. QUETIAPINE FUMARATE. [Concomitant]
     Active Substance: QUETIAPINE FUMARATE
  64. ALPHAGAN P [Concomitant]
     Active Substance: BRIMONIDINE TARTRATE
  65. LISINOPRIL. [Concomitant]
     Active Substance: LISINOPRIL
  66. VENTOLIN [Concomitant]
     Active Substance: ALBUTEROL SULFATE
  67. PROBENECID. [Concomitant]
     Active Substance: PROBENECID
  68. AVELOX [Concomitant]
     Active Substance: MOXIFLOXACIN HYDROCHLORIDE
  69. PROAIR HFA [Concomitant]
     Active Substance: ALBUTEROL SULFATE
  70. TESTOSTERONE CYPIONATE. [Concomitant]
     Active Substance: TESTOSTERONE CYPIONATE
  71. LOTEMAX [Concomitant]
     Active Substance: LOTEPREDNOL ETABONATE

REACTIONS (16)
  - Muscle atrophy [Not Recovered/Not Resolved]
  - Bone loss [Unknown]
  - Tooth loss [Unknown]
  - Economic problem [Unknown]
  - Anxiety [Unknown]
  - Pain [Unknown]
  - Gait disturbance [Not Recovered/Not Resolved]
  - Osteonecrosis [Unknown]
  - Chondropathy [Not Recovered/Not Resolved]
  - Loss of personal independence in daily activities [Not Recovered/Not Resolved]
  - Osteoarthritis [Not Recovered/Not Resolved]
  - Emotional distress [Unknown]
  - Osteoporosis [Not Recovered/Not Resolved]
  - Bone density abnormal [Unknown]
  - Anhedonia [Unknown]
  - Bone density decreased [Not Recovered/Not Resolved]

NARRATIVE: CASE EVENT DATE: 2014
